FAERS Safety Report 23420142 (Version 1)
Quarter: 2024Q1

REPORT INFORMATION
  Report Type: Spontaneous
  Country: FR (occurrence: FR)
  Receive Date: 20240119
  Receipt Date: 20240119
  Transmission Date: 20240409
  Serious: Yes (Life-Threatening, Hospitalization, Other)
  Sender: FDA-Public Use
  Company Number: FR-CELLTRION INC.-2024FR001166

PATIENT

DRUGS (2)
  1. RITUXIMAB [Suspect]
     Active Substance: RITUXIMAB
     Indication: Granulomatosis with polyangiitis
     Dosage: 500 MG
     Route: 042
     Dates: start: 20200924, end: 20220513
  2. COMIRNATY (TOZINAMERAN) [Suspect]
     Active Substance: TOZINAMERAN
     Indication: COVID-19 immunisation
     Dosage: 1 DF, D3
     Route: 030
     Dates: start: 20220529, end: 20220529

REACTIONS (2)
  - Agranulocytosis [Recovered/Resolved]
  - Oral herpes [Recovered/Resolved]

NARRATIVE: CASE EVENT DATE: 20220626
